FAERS Safety Report 4621817-4 (Version None)
Quarter: 2005Q1

REPORT INFORMATION
  Report Type: 
  Country: None (occurrence: None)
  Receive Date: 20050329
  Receipt Date: 20050316
  Transmission Date: 20050727
  Serious: Yes (Other)
  Sender: FDA-Public Use
  Company Number: 200510876JP

PATIENT
  Age: 75 Year
  Sex: Male

DRUGS (5)
  1. KETEK [Suspect]
     Indication: CHRONIC SINUSITIS
     Route: 048
     Dates: start: 20050311, end: 20050316
  2. KETEK [Suspect]
     Indication: CONDITION AGGRAVATED
     Route: 048
     Dates: start: 20050311, end: 20050316
  3. PROHEPARUM [Concomitant]
  4. FLIVAS [Concomitant]
     Indication: DYSURIA
  5. BENZALIN [Concomitant]

REACTIONS (3)
  - FALL [None]
  - LOSS OF CONSCIOUSNESS [None]
  - SKIN LACERATION [None]
